FAERS Safety Report 16597914 (Version 2)
Quarter: 2019Q4

REPORT INFORMATION
  Report Type: Spontaneous
  Country: US (occurrence: US)
  Receive Date: 20190719
  Receipt Date: 20191018
  Transmission Date: 20200122
  Serious: No
  Sender: FDA-Public Use
  Company Number: US-PFIZER INC-2019307423

PATIENT
  Age: 47 Year
  Sex: Male
  Weight: 99.77 kg

DRUGS (4)
  1. GABAPENTIN. [Suspect]
     Active Substance: GABAPENTIN
     Indication: CERVICAL RADICULOPATHY
  2. GABAPENTIN. [Suspect]
     Active Substance: GABAPENTIN
     Indication: SCIATICA
  3. GABAPENTIN. [Suspect]
     Active Substance: GABAPENTIN
     Indication: OCCIPITAL NEURALGIA
  4. GABAPENTIN. [Suspect]
     Active Substance: GABAPENTIN
     Indication: BACK PAIN
     Dosage: 200 MG, DAILY, [TWO 100 MG]
     Dates: start: 20190301, end: 20190611

REACTIONS (8)
  - Product use in unapproved indication [Unknown]
  - Aggression [Recovered/Resolved]
  - Off label use [Unknown]
  - Loss of employment [Unknown]
  - Impatience [Unknown]
  - Depression [Unknown]
  - Mood swings [Unknown]
  - Psychomotor hyperactivity [Recovered/Resolved]

NARRATIVE: CASE EVENT DATE: 20190301
